FAERS Safety Report 7510223-0 (Version None)
Quarter: 2011Q2

REPORT INFORMATION
  Report Type: 
  Country: None (occurrence: None)
  Receive Date: 20110527
  Receipt Date: 20110522
  Transmission Date: 20111010
  Serious: Yes (Hospitalization, Other)
  Sender: FDA-Public Use
  Company Number: US-ABBOTT-11P-163-0728042-00

PATIENT
  Sex: Male

DRUGS (13)
  1. XANAX [Concomitant]
     Indication: ANXIETY
  2. FOLIC ACID [Concomitant]
     Indication: VITAMIN SUPPLEMENTATION
  3. MS CONTIN [Concomitant]
     Indication: INTERVERTEBRAL DISC DEGENERATION
  4. MS CONTIN [Concomitant]
     Indication: PAIN
  5. HUMIRA [Suspect]
     Indication: CROHN'S DISEASE
     Dates: start: 20101101
  6. VITAMIN D [Concomitant]
     Indication: OSTEOPOROSIS
  7. CALCIUM CARBONATE [Concomitant]
     Indication: OSTEOPOROSIS
  8. OMEPRAZOLE [Concomitant]
     Indication: GASTROOESOPHAGEAL REFLUX DISEASE
  9. METHOTREXATE [Concomitant]
     Indication: CROHN'S DISEASE
     Route: 050
  10. OXYCODONE HCL [Concomitant]
     Indication: BREAKTHROUGH PAIN
  11. SOMA [Concomitant]
     Indication: INTERVERTEBRAL DISC DEGENERATION
  12. VITAMIN B-12 [Concomitant]
     Indication: CROHN'S DISEASE
  13. OXYCODONE HCL [Concomitant]
     Indication: INTERVERTEBRAL DISC DEGENERATION

REACTIONS (8)
  - HAEMORRHAGE [None]
  - ILEOSTOMY CLOSURE [None]
  - ANAL FISSURE [None]
  - OSTEOPOROSIS [None]
  - ABSCESS [None]
  - BLOOD PRESSURE DECREASED [None]
  - PERIRECTAL ABSCESS [None]
  - ANAL FISTULA [None]
